FAERS Safety Report 4800082-9 (Version None)
Quarter: 2005Q4

REPORT INFORMATION
  Report Type: 
  Country: None (occurrence: None)
  Receive Date: 20051012
  Receipt Date: 20051012
  Transmission Date: 20060501
  Serious: Yes (Hospitalization)
  Sender: FDA-Public Use
  Company Number: None

PATIENT
  Age: 50 Year
  Sex: Male
  Weight: 97.0698 kg

DRUGS (2)
  1. SEPTRA DS [Suspect]
     Indication: SOFT TISSUE INFECTION
     Dosage: ONE BID [ONE TAB ONLY]
     Dates: start: 20051004
  2. SEPTRA DS [Suspect]
     Indication: STAPHYLOCOCCAL INFECTION
     Dosage: ONE BID [ONE TAB ONLY]
     Dates: start: 20051004

REACTIONS (1)
  - MENINGITIS ASEPTIC [None]
